FAERS Safety Report 20087224 (Version 2)
Quarter: 2021Q4

REPORT INFORMATION
  Report Type: Spontaneous
  Country: JP (occurrence: JP)
  Receive Date: 20211118
  Receipt Date: 20211223
  Transmission Date: 20220303
  Serious: Yes (Hospitalization, Other)
  Sender: FDA-Public Use
  Company Number: JP-OTSUKA-2021_039488

PATIENT
  Age: 59 Year
  Sex: Male
  Weight: 63 kg

DRUGS (12)
  1. SAMSCA [Suspect]
     Active Substance: TOLVAPTAN
     Indication: Myocardial infarction
     Dosage: 7.5 MG, QD
     Route: 065
     Dates: start: 20210204
  2. ENALAPRIL MALEATE [Concomitant]
     Active Substance: ENALAPRIL MALEATE
     Indication: Product used for unknown indication
     Dosage: 10 MG, QD
     Route: 065
     Dates: start: 20210204
  3. AZOSEMIDE [Concomitant]
     Active Substance: AZOSEMIDE
     Indication: Product used for unknown indication
     Dosage: 30 MG, QD
     Route: 065
     Dates: start: 20210204, end: 20210311
  4. AZOSEMIDE [Concomitant]
     Active Substance: AZOSEMIDE
     Dosage: 15 MG, QD
     Route: 065
     Dates: start: 20210311
  5. SPIRONOLACTONE [Concomitant]
     Active Substance: SPIRONOLACTONE
     Indication: Product used for unknown indication
     Dosage: 12.5 MG, QD
     Route: 065
     Dates: start: 20210204, end: 20210311
  6. SPIRONOLACTONE [Concomitant]
     Active Substance: SPIRONOLACTONE
     Dosage: 12.5 MG, QD
     Route: 065
  7. CARVEDILOL [Concomitant]
     Active Substance: CARVEDILOL
     Indication: Product used for unknown indication
     Dosage: 10 MG, QD
     Route: 065
     Dates: start: 20210204, end: 20210908
  8. BISOPROLOL [Concomitant]
     Active Substance: BISOPROLOL
     Indication: Product used for unknown indication
     Dosage: 2.5 MG, QD
     Route: 065
     Dates: start: 20210908
  9. ENTRESTO [Concomitant]
     Active Substance: SACUBITRIL\VALSARTAN
     Indication: Product used for unknown indication
     Dosage: 100 MG, QD
     Route: 065
     Dates: start: 20210204, end: 20210311
  10. ENTRESTO [Concomitant]
     Active Substance: SACUBITRIL\VALSARTAN
     Dosage: 200 MG, QD
     Route: 065
     Dates: start: 20210311, end: 20210408
  11. ENTRESTO [Concomitant]
     Active Substance: SACUBITRIL\VALSARTAN
     Dosage: 400 MG, QD
     Route: 065
     Dates: start: 20210408
  12. DAPAGLIFLOZIN PROPANEDIOL [Concomitant]
     Active Substance: DAPAGLIFLOZIN PROPANEDIOL
     Indication: Product used for unknown indication
     Dosage: 10 MG, QD
     Route: 065

REACTIONS (5)
  - Cardiac failure chronic [Unknown]
  - Blood creatinine increased [Unknown]
  - Blood potassium increased [Unknown]
  - Cough variant asthma [Unknown]
  - Product use in unapproved indication [Unknown]

NARRATIVE: CASE EVENT DATE: 20210205
